FAERS Safety Report 22096564 (Version 1)
Quarter: 2023Q1

REPORT INFORMATION
  Report Type: Spontaneous
  Country: US (occurrence: US)
  Receive Date: 20230315
  Receipt Date: 20230315
  Transmission Date: 20230417
  Serious: Yes (Hospitalization)
  Sender: FDA-Public Use
  Company Number: US-ALKEM LABORATORIES LIMITED-US-ALKEM-2023-02472

PATIENT
  Age: 50 Year
  Sex: Male

DRUGS (14)
  1. CLOZAPINE [Interacting]
     Active Substance: CLOZAPINE
     Indication: Product used for unknown indication
     Dosage: 200 MG (ONCE IN THE AFTERNOON)
     Route: 065
  2. CLOZAPINE [Interacting]
     Active Substance: CLOZAPINE
     Dosage: 400 MG AT BEDTIME
     Route: 065
  3. CLOZAPINE [Interacting]
     Active Substance: CLOZAPINE
     Dosage: UNK (CROSS-TITRATED GRADUALLY DECREASING CLOZAPINE DOSE)
     Route: 065
  4. CLOZAPINE [Interacting]
     Active Substance: CLOZAPINE
     Dosage: 50 MILLIGRAM, QD DAILY (WITH A PLAN TO GRADUALLY TAPER OFF COMPLETELY)
     Route: 065
  5. OMEPRAZOLE [Suspect]
     Active Substance: OMEPRAZOLE
     Indication: Product used for unknown indication
     Dosage: 20 MILLIGRAM (ONCE DAILY)
     Route: 065
  6. OLANZAPINE [Suspect]
     Active Substance: OLANZAPINE
     Indication: Psychotic disorder
     Dosage: UNK (A TOTAL OF 120 MG)
     Route: 065
  7. OLANZAPINE [Suspect]
     Active Substance: OLANZAPINE
     Indication: Agitation
  8. DOCUSATE SODIUM\SENNOSIDES [Suspect]
     Active Substance: DOCUSATE SODIUM\SENNOSIDES
     Indication: Product used for unknown indication
     Dosage: UNK
     Route: 065
  9. SOLIFENACIN [Suspect]
     Active Substance: SOLIFENACIN
     Indication: Product used for unknown indication
     Dosage: 5 MILLIGRAM (ONCE DAILY)
     Route: 065
  10. FERROUS SULFATE [Suspect]
     Active Substance: FERROUS SULFATE
     Indication: Product used for unknown indication
     Dosage: 325 MILLIGRAM (ONCE DAILY)
     Route: 065
  11. LISINOPRIL [Suspect]
     Active Substance: LISINOPRIL
     Indication: Product used for unknown indication
     Dosage: 10 MILLIGRAM
     Route: 065
  12. VALPROATE [Suspect]
     Active Substance: VALPROIC ACID
     Indication: Product used for unknown indication
     Dosage: EXTENDED RELEASE 2,000 MG
     Route: 065
  13. VALPROATE [Suspect]
     Active Substance: VALPROIC ACID
     Dosage: 500 MILLIGRAM, BID (DECREASED)
     Route: 065
  14. ASENAPINE [Concomitant]
     Active Substance: ASENAPINE
     Indication: Product used for unknown indication
     Dosage: 15 MG TWICE DAILY
     Route: 065

REACTIONS (6)
  - Abdominal distension [Unknown]
  - Gastrointestinal hypomotility [Unknown]
  - Drug level increased [Unknown]
  - Constipation [Recovering/Resolving]
  - Drug interaction [Unknown]
  - Drug ineffective [Unknown]
